FAERS Safety Report 6274364-0 (Version None)
Quarter: 2009Q3

REPORT INFORMATION
  Report Type: 
  Country: None (occurrence: None)
  Receive Date: 20090720
  Receipt Date: 20090713
  Transmission Date: 20100115
  Serious: Yes (Hospitalization, Other)
  Sender: FDA-Public Use
  Company Number: US-CELGENEUS-163-21880-09060963

PATIENT
  Age: 60 Year
  Sex: Female

DRUGS (21)
  1. REVLIMID [Suspect]
     Indication: MULTIPLE MYELOMA
     Route: 048
     Dates: start: 20090505, end: 20090604
  2. REVLIMID [Suspect]
     Route: 048
     Dates: start: 20090709
  3. VALACYCLOVIR [Concomitant]
     Indication: ANTIVIRAL PROPHYLAXIS
     Route: 048
  4. DAPSONE [Concomitant]
     Route: 048
  5. CALCIUM WITH VITAMIN D [Concomitant]
     Indication: DRUG USE FOR UNKNOWN INDICATION
     Route: 048
  6. BENADRYL [Concomitant]
     Route: 048
  7. VAGIFEM [Concomitant]
     Indication: DRUG USE FOR UNKNOWN INDICATION
     Route: 067
  8. LISINOPRIL [Concomitant]
     Indication: BLOOD PRESSURE
     Route: 065
  9. LORAZEPAM [Concomitant]
     Indication: NAUSEA
     Route: 048
  10. LORAZEPAM [Concomitant]
     Indication: VOMITING
  11. MAGNESIUM SULFATE [Concomitant]
     Indication: DRUG USE FOR UNKNOWN INDICATION
     Route: 051
  12. MULTIVITAMINS WITH NO IRON [Concomitant]
     Indication: DRUG USE FOR UNKNOWN INDICATION
     Route: 065
  13. OMEPRAZOLE [Concomitant]
     Indication: DRUG USE FOR UNKNOWN INDICATION
     Route: 065
  14. OXYCONTIN [Concomitant]
     Indication: DRUG USE FOR UNKNOWN INDICATION
     Route: 048
  15. POTASSIUM CHLORIDE [Concomitant]
     Indication: DRUG USE FOR UNKNOWN INDICATION
     Route: 048
  16. COMPAZINE [Concomitant]
     Indication: NAUSEA
     Route: 048
  17. COMPAZINE [Concomitant]
     Indication: VOMITING
  18. SIMVASTATIN [Concomitant]
     Route: 048
  19. URSODIOL [Concomitant]
     Indication: DRUG USE FOR UNKNOWN INDICATION
     Route: 048
  20. AMBIEN [Concomitant]
     Indication: INSOMNIA
     Dosage: 5-10MG
     Route: 048
  21. ESTRADIOL VAGINAL [Concomitant]
     Route: 067

REACTIONS (1)
  - PNEUMONIA LEGIONELLA [None]
